FAERS Safety Report 13100679 (Version 2)
Quarter: 2017Q1

REPORT INFORMATION
  Report Type: Spontaneous
  Country: JP (occurrence: JP)
  Receive Date: 20170110
  Receipt Date: 20170320
  Transmission Date: 20170428
  Serious: Yes (Other)
  Sender: FDA-Public Use
  Company Number: JP-009507513-1701JPN003265

PATIENT
  Age: 80 Year
  Sex: Male

DRUGS (5)
  1. ACINON [Interacting]
     Active Substance: NIZATIDINE
     Dosage: 150 MG, UNK
     Route: 048
  2. DESALEX TABLETS 5MG [Suspect]
     Active Substance: DESLORATADINE
     Indication: RHINITIS ALLERGIC
     Dosage: UNK
     Route: 048
     Dates: start: 201612
  3. CRESTOR [Interacting]
     Active Substance: ROSUVASTATIN CALCIUM
     Dosage: UNK
     Route: 048
  4. BETANIS [Interacting]
     Active Substance: MIRABEGRON
     Dosage: 50 MG, QD
     Route: 048
  5. TAMSULOSIN HYDROCHLORIDE. [Interacting]
     Active Substance: TAMSULOSIN HYDROCHLORIDE
     Dosage: 0.2 MG, QD
     Route: 048

REACTIONS (4)
  - Rhabdomyolysis [Unknown]
  - Movement disorder [Unknown]
  - Drug interaction [Unknown]
  - Blood creatine phosphokinase increased [Unknown]

NARRATIVE: CASE EVENT DATE: 20161230
